FAERS Safety Report 11441688 (Version 2)
Quarter: 2015Q4

REPORT INFORMATION
  Report Type: Spontaneous
  Country: US (occurrence: US)
  Receive Date: 20150901
  Receipt Date: 20151109
  Transmission Date: 20160304
  Serious: No
  Sender: FDA-Public Use
  Company Number: US-TEVA-586739USA

PATIENT
  Age: 57 Year
  Sex: Female

DRUGS (16)
  1. MONTELUKAST [Concomitant]
     Active Substance: MONTELUKAST SODIUM
     Dosage: UNKNOWN
     Route: 065
  2. SUMATRIPTAN. [Concomitant]
     Active Substance: SUMATRIPTAN
     Dosage: UNKNOWN
     Route: 065
  3. COPAXONE [Suspect]
     Active Substance: GLATIRAMER ACETATE
     Indication: MULTIPLE SCLEROSIS
     Route: 058
     Dates: start: 20150727, end: 20150801
  4. HYDROCODONE BITARTRATE AND ACETAMINOPHEN [Concomitant]
     Active Substance: ACETAMINOPHEN\HYDROCODONE BITARTRATE
     Dosage: UNKNOWN
     Route: 065
  5. LAMOTRIGINE. [Concomitant]
     Active Substance: LAMOTRIGINE
     Dosage: UNKNOWN
     Route: 065
  6. LISINOPRIL. [Concomitant]
     Active Substance: LISINOPRIL
     Dosage: UNKNOWN
     Route: 065
  7. METOPROLOL TARTRATE. [Concomitant]
     Active Substance: METOPROLOL TARTRATE
     Dosage: UNKNOWN
     Route: 065
  8. PHENAZOPYRIDINE. [Concomitant]
     Active Substance: PHENAZOPYRIDINE
     Dosage: UNKNOWN
     Route: 065
  9. SMZ-TMP [Concomitant]
     Active Substance: SULFAMETHOXAZOLE\TRIMETHOPRIM
     Dosage: UNKNOWN
     Route: 065
  10. CLONAZEPAM. [Concomitant]
     Active Substance: CLONAZEPAM
     Dosage: UNKNOWN
     Route: 065
  11. CYCLOBENZAPRINE [Concomitant]
     Active Substance: CYCLOBENZAPRINE
     Dosage: UNKNOWN
     Route: 065
  12. AMOX CLAV [Concomitant]
     Active Substance: AMOXICILLIN\CLAVULANATE POTASSIUM
     Dosage: UNKNOWN
     Route: 065
  13. TOPIRAMATE. [Concomitant]
     Active Substance: TOPIRAMATE
     Dosage: UNKNOWN
     Route: 065
  14. GABAPENTIN. [Concomitant]
     Active Substance: GABAPENTIN
     Dosage: UNKNOWN
     Route: 065
  15. SERTRALINE [Concomitant]
     Active Substance: SERTRALINE HYDROCHLORIDE
     Dosage: UNKNOWN
     Route: 065
  16. QUETIAPINE [Concomitant]
     Active Substance: QUETIAPINE
     Dosage: UNKNOWN
     Route: 065

REACTIONS (5)
  - Heart rate increased [Unknown]
  - Immediate post-injection reaction [Recovered/Resolved]
  - Flushing [Recovered/Resolved]
  - Chest pain [Unknown]
  - Anxiety [Unknown]

NARRATIVE: CASE EVENT DATE: 20150801
